FAERS Safety Report 8914673 (Version 1)
Quarter: 2012Q4

REPORT INFORMATION
  Report Type: 
  Country: SE (occurrence: SE)
  Receive Date: 20121119
  Receipt Date: 20121119
  Transmission Date: 20130627
  Serious: Yes (Hospitalization)
  Sender: FDA-Public Use
  Company Number: SE-PFIZER INC-2012285960

PATIENT
  Age: 58 Year
  Sex: Female
  Weight: 87.3 kg

DRUGS (15)
  1. GENOTROPIN [Suspect]
     Dosage: 0.3 mg, 1x/day,7 injections/week
     Route: 058
     Dates: start: 20010615
  2. ESTRADIOL [Concomitant]
     Indication: LUTEINIZING HORMONE DEFICIENCY
     Dosage: UNK
     Dates: start: 19980201
  3. ESTRADIOL [Concomitant]
     Indication: FOLLICLE-STIMULATING HORMONE DEFICIENCY
  4. ESTRADIOL [Concomitant]
     Indication: OVARIAN DISORDER
  5. ESTRADIOL [Concomitant]
     Indication: HYPOGONADISM
  6. NORETHISTERONE [Concomitant]
     Indication: FOLLICLE-STIMULATING HORMONE DEFICIENCY
     Dosage: UNK
     Dates: start: 19980201
  7. NORETHISTERONE [Concomitant]
     Indication: LUTEINISING HORMONE DEFICIENCY
  8. NORETHISTERONE [Concomitant]
     Indication: OVARIAN DISORDER
  9. NORETHISTERONE [Concomitant]
     Indication: HYPOGONADISM
  10. LEVOTHYROXINE [Concomitant]
     Indication: THYROID DISORDER
     Dosage: UNK
     Dates: start: 19940901
  11. LEVOTHYROXINE [Concomitant]
     Indication: PRIMARY HYPOTHYROIDISM
  12. CORTISONE ACETATE [Concomitant]
     Indication: ACTH DECREASED
     Dosage: UNK
     Dates: start: 19940901
  13. CIPRAMIL [Concomitant]
     Indication: ANTIDIURETIC HORMONE DISORDER
     Dosage: UNK
     Dates: start: 19981008
  14. PROPAVAN [Concomitant]
     Indication: SLEEP DISTURBANCE
     Dosage: UNK
     Dates: start: 19981008
  15. LIPITOR [Concomitant]
     Indication: PURE HYPERCHOLESTEROLAEMIA
     Dosage: UNK
     Dates: start: 20000910

REACTIONS (2)
  - Dizziness [Unknown]
  - Vomiting [Unknown]
